FAERS Safety Report 4354960-8 (Version None)
Quarter: 2004Q2

REPORT INFORMATION
  Report Type: 
  Country: None (occurrence: None)
  Receive Date: 20040504
  Receipt Date: 20040420
  Transmission Date: 20050107
  Serious: Yes (Hospitalization, Other)
  Sender: FDA-Public Use
  Company Number: 193007

PATIENT
  Age: 51 Year
  Sex: Male

DRUGS (2)
  1. AVONEX [Suspect]
     Indication: MULTIPLE SCLEROSIS
     Dosage: 30 MCG QW IM
     Route: 030
  2. GLUCOTROL [Concomitant]

REACTIONS (5)
  - APPENDICITIS [None]
  - BACK PAIN [None]
  - COLONIC POLYP [None]
  - LUMBAR RADICULOPATHY [None]
  - ROAD TRAFFIC ACCIDENT [None]
